FAERS Safety Report 7284012-9 (Version None)
Quarter: 2011Q1

REPORT INFORMATION
  Report Type: 
  Country: None (occurrence: None)
  Receive Date: 20110209
  Receipt Date: 20110201
  Transmission Date: 20110831
  Serious: Yes (Hospitalization)
  Sender: FDA-Public Use
  Company Number: US-SANOFI-AVENTIS-2011SA006695

PATIENT
  Age: 86 Year
  Sex: Male

DRUGS (4)
  1. LANTUS [Suspect]
     Dosage: DOSE:30 UNIT(S)
     Route: 058
     Dates: start: 20101201
  2. LANTUS [Suspect]
     Dosage: TOTAL DOSE OF 135 MG DOSE:75 UNIT(S)
     Route: 058
     Dates: start: 19960101, end: 20101201
  3. OPTICLICK [Suspect]
     Dates: start: 19960101
  4. ALL OTHER THERAPEUTIC PRODUCTS [Concomitant]

REACTIONS (3)
  - FALL [None]
  - BALANCE DISORDER [None]
  - MYOCARDIAL INFARCTION [None]
